FAERS Safety Report 8537346-1 (Version None)
Quarter: 2012Q3

REPORT INFORMATION
  Report Type: 
  Country: None (occurrence: None)
  Receive Date: 20120725
  Receipt Date: 20120717
  Transmission Date: 20120928
  Serious: Yes (Other)
  Sender: FDA-Public Use
  Company Number: US-PFIZER INC-2009151294

PATIENT
  Sex: Female
  Weight: 73.923 kg

DRUGS (12)
  1. CHANTIX [Suspect]
     Indication: SMOKING CESSATION THERAPY
     Dosage: 0.5 MG, 1X/DAY
     Dates: start: 20081228
  2. CYCLOBENZAPRINE [Concomitant]
     Dosage: 10 MG, UNK
  3. TRAZODONE [Concomitant]
     Dosage: 150 MG, AS NEEDED
  4. CHANTIX [Suspect]
     Dosage: 0.5 MG, DAILY
  5. GABAPENTIN [Concomitant]
     Dosage: 600 MG, 3X/DAY
  6. CYMBALTA [Concomitant]
     Indication: NEURALGIA
     Dosage: UNK
  7. VITAMIN B-12 [Concomitant]
     Dosage: UNK
  8. LISURIDE [Concomitant]
     Indication: RHEUMATOID ARTHRITIS
     Dosage: 10 MG, UNK
  9. VICODIN [Concomitant]
     Dosage: 500 MG, UNK
  10. SULINDAC [Concomitant]
     Dosage: 200 MG, 2X/DAY
  11. CHANTIX [Suspect]
     Dosage: 1 MG, 2X/DAY
  12. CHANTIX [Suspect]
     Dosage: 0.5 MG, DAILY
     Dates: start: 20120716

REACTIONS (18)
  - RESPIRATORY DISTRESS [None]
  - CONFUSIONAL STATE [None]
  - VICTIM OF CRIME [None]
  - SOMNOLENCE [None]
  - ABNORMAL DREAMS [None]
  - MUSCLE SPASMS [None]
  - FEELING ABNORMAL [None]
  - DRUG INEFFECTIVE [None]
  - INSOMNIA [None]
  - NAUSEA [None]
  - ALCOHOLIC [None]
  - SLEEP TALKING [None]
  - ANXIETY [None]
  - THIRST [None]
  - WEIGHT INCREASED [None]
  - AGGRESSION [None]
  - SOMNAMBULISM [None]
  - STRESS [None]
